FAERS Safety Report 10487587 (Version 1)
Quarter: 2014Q3

REPORT INFORMATION
  Report Type: Spontaneous
  Country: US (occurrence: None)
  Receive Date: 20140908
  Receipt Date: 20140908
  Transmission Date: 20150326
  Serious: Yes (Other)
  Sender: FDA-Public Use
  Company Number: 401317

PATIENT
  Age: 53 Year
  Sex: Female
  Weight: 107.9 kg

DRUGS (7)
  1. VICTOZA [Suspect]
     Active Substance: LIRAGLUTIDE
     Indication: TYPE 2 DIABETES MELLITUS
     Route: 058
     Dates: start: 20140123, end: 20140209
  2. GLIPIZIDE. [Concomitant]
     Active Substance: GLIPIZIDE
  3. ASMANEX [Concomitant]
     Active Substance: MOMETASONE FUROATE
  4. ALPRAZOLAM. [Concomitant]
     Active Substance: ALPRAZOLAM
  5. CELEXA [Concomitant]
     Active Substance: CITALOPRAM HYDROBROMIDE
  6. LANSOPRAZOLE (LANSOPRAZOLE) [Concomitant]
     Active Substance: LANSOPRAZOLE
  7. LOSARTAN [Concomitant]
     Active Substance: LOSARTAN

REACTIONS (3)
  - Headache [None]
  - Pancreatitis [None]
  - Vertigo [None]

NARRATIVE: CASE EVENT DATE: 20140209
